FAERS Safety Report 11581217 (Version 1)
Quarter: 2015Q4

REPORT INFORMATION
  Report Type: Spontaneous
  Country: US (occurrence: US)
  Receive Date: 20151001
  Receipt Date: 20151001
  Transmission Date: 20160304
  Serious: No
  Sender: FDA-Public Use
  Company Number: US-ROCHE-703073

PATIENT
  Sex: Male
  Weight: 103.9 kg

DRUGS (2)
  1. PEGASYS [Suspect]
     Active Substance: PEGINTERFERON ALFA-2A
     Indication: HEPATITIS C
     Route: 065
  2. ACTIFED COLD PRODUCT NOS [Concomitant]
     Route: 065

REACTIONS (3)
  - No adverse event [Unknown]
  - Medication error [Unknown]
  - Product quality issue [Unknown]
